FAERS Safety Report 8004596-2 (Version None)
Quarter: 2011Q4

REPORT INFORMATION
  Report Type: 
  Country: None (occurrence: None)
  Receive Date: 20111223
  Receipt Date: 20111213
  Transmission Date: 20120403
  Serious: Yes (Other)
  Sender: FDA-Public Use
  Company Number: US-JNJFOC-20111010535

PATIENT
  Sex: Male
  Weight: 158.31 kg

DRUGS (10)
  1. SINGULAIR [Concomitant]
     Indication: SEASONAL ALLERGY
     Route: 065
     Dates: start: 20070501
  2. FUROSEMIDE [Concomitant]
     Indication: DIURETIC THERAPY
     Route: 065
     Dates: start: 20110525
  3. RAMIPRIL [Concomitant]
     Indication: HYPERTENSION
     Route: 065
     Dates: start: 20101110
  4. IBUPROFEN [Concomitant]
  5. REMICADE [Suspect]
     Dosage: FOR YEARS. 2ND DOSE
     Route: 042
     Dates: start: 20070503, end: 20111004
  6. NASONEX [Concomitant]
  7. REMICADE [Suspect]
     Indication: PSORIASIS
     Route: 042
  8. VITAMIN D [Concomitant]
     Indication: NUTRITIONAL SUPPORT
     Dosage: DOSE: 5000 U
     Route: 065
     Dates: start: 20110210
  9. PATANOL [Concomitant]
     Route: 047
  10. OMEPRAZOLE [Concomitant]
     Route: 065
     Dates: start: 20100208

REACTIONS (3)
  - IMPAIRED HEALING [None]
  - VENOUS INSUFFICIENCY [None]
  - SKIN ULCER [None]
